FAERS Safety Report 11363282 (Version 1)
Quarter: 2015Q3

REPORT INFORMATION
  Report Type: Spontaneous
  Country: GB (occurrence: None)
  Receive Date: 20150807
  Receipt Date: 20150807
  Transmission Date: 20151125
  Serious: Yes (Other)
  Sender: FDA-Public Use
  Company Number: GB-H14001-15-01466

PATIENT
  Age: 88 Year

DRUGS (2)
  1. CO-AMOXICLAV (AUGMENTIN /00756801/) (UNKNOWN) (AMOXICILLIN SODIUM, CLAVULANATE POTASSIUM) [Suspect]
     Active Substance: AMOXICILLIN\CLAVULANATE POTASSIUM
     Indication: PRODUCT USED FOR UNKNOWN INDICATION
     Route: 048
     Dates: start: 201504
  2. PIPERACILLIN AND TAZOBACTAM [Suspect]
     Active Substance: PIPERACILLIN SODIUM\TAZOBACTAM SODIUM
     Indication: PRODUCT USED FOR UNKNOWN INDICATION
     Route: 042
     Dates: start: 20150418

REACTIONS (3)
  - Rash erythematous [None]
  - Rash generalised [None]
  - Renal impairment [None]

NARRATIVE: CASE EVENT DATE: 20150421
